FAERS Safety Report 6949204-4 (Version None)
Quarter: 2010Q3

REPORT INFORMATION
  Report Type: 
  Country: None (occurrence: None)
  Receive Date: 20100828
  Receipt Date: 20091209
  Transmission Date: 20110219
  Serious: No
  Sender: FDA-Public Use
  Company Number: US-ABBOTT-09P-163-0613972-00

PATIENT
  Sex: Female
  Weight: 72.64 kg

DRUGS (3)
  1. NIASPAN [Suspect]
     Indication: BLOOD CHOLESTEROL INCREASED
     Dosage: TAKEN IN A.M.
     Route: 048
     Dates: start: 20091209
  2. ASPIRIN [Concomitant]
     Indication: CARDIAC DISORDER
     Route: 048
  3. METOPROLOL [Concomitant]
     Indication: CARDIAC DISORDER
     Route: 048

REACTIONS (4)
  - ERYTHEMA [None]
  - FEELING HOT [None]
  - PRURITUS [None]
  - SWELLING FACE [None]
